FAERS Safety Report 25360731 (Version 1)
Quarter: 2025Q2

REPORT INFORMATION
  Report Type: Spontaneous
  Country: US (occurrence: US)
  Receive Date: 20250527
  Receipt Date: 20250527
  Transmission Date: 20250716
  Serious: Yes (Death, Other)
  Sender: AMGEN
  Company Number: US-AMGEN-USASP2025100173

PATIENT

DRUGS (1)
  1. PREDNISONE [Suspect]
     Active Substance: PREDNISONE
     Indication: COVID-19
     Route: 065

REACTIONS (16)
  - Death [Fatal]
  - Cerebrovascular accident [Unknown]
  - Cardiogenic shock [Unknown]
  - Myocardial infarction [Unknown]
  - Cardiac failure [Unknown]
  - Central sleep apnoea syndrome [Unknown]
  - Circadian rhythm sleep disorder [Unknown]
  - Fatigue [Unknown]
  - Mental disorder [Unknown]
  - Dyspnoea [Unknown]
  - Migraine [Unknown]
  - Anxiety disorder [Unknown]
  - Off label use [Unknown]
  - Insomnia [Unknown]
  - Headache [Unknown]
  - Depression [Unknown]
